FAERS Safety Report 8500356-4 (Version None)
Quarter: 2012Q3

REPORT INFORMATION
  Report Type: 
  Country: None (occurrence: None)
  Receive Date: 20120703
  Receipt Date: 20120703
  Transmission Date: 20120928
  Serious: No
  Sender: FDA-Public Use
  Company Number: None

PATIENT
  Sex: Male
  Weight: 103 kg

DRUGS (2)
  1. CISPLATIN [Suspect]
     Dosage: 140.4 MG
  2. ETOPOSIDE [Suspect]
     Dosage: 256.5 MG

REACTIONS (1)
  - NEUTROPENIA [None]
